FAERS Safety Report 5807962-6 (Version None)
Quarter: 2008Q3

REPORT INFORMATION
  Report Type: 
  Country: None (occurrence: None)
  Receive Date: 20080708
  Receipt Date: 20080625
  Transmission Date: 20090109
  Serious: Yes (Death, Hospitalization)
  Sender: FDA-Public Use
  Company Number: A-JP2008-21043

PATIENT
  Sex: Female

DRUGS (2)
  1. TRACLEER [Suspect]
     Indication: PULMONARY ARTERIAL HYPERTENSION
     Dosage: 62.5 MG, BID, ORAL
     Route: 048
     Dates: start: 20080428
  2. EPOPROSTENOL SODIUM [Concomitant]

REACTIONS (1)
  - INTERSTITIAL LUNG DISEASE [None]
